FAERS Safety Report 6942420 (Version 17)
Quarter: 2013Q3

REPORT INFORMATION
  Report Type: Spontaneous
  Country: US (occurrence: US)
  Receive Date: 20090317
  Receipt Date: 20130828
  Transmission Date: 20140515
  Serious: Yes (Death, Other)
  Sender: FDA-Public Use
  Company Number: PHEH2009US02564

PATIENT
  Age: 68 Year
  Sex: Female
  Weight: 48.98 kg

DRUGS (30)
  1. AREDIA [Suspect]
  2. ZOMETA [Suspect]
  3. TAXOTERE [Concomitant]
  4. TAXOL [Concomitant]
  5. XELODA [Concomitant]
  6. ARANESP [Concomitant]
  7. VIOXX [Concomitant]
  8. GLUCOVANCE [Concomitant]
  9. ZOCOR ^MERCK^ [Concomitant]
  10. LETROZOLE [Concomitant]
  11. EXEMESTANE [Concomitant]
  12. ADVIL                              /00044201/ [Concomitant]
  13. GLUCOPHAGE [Concomitant]
  14. ELOCON [Concomitant]
     Indication: FUNGAL INFECTION
  15. CYTOXAN [Concomitant]
     Indication: BREAST CANCER
  16. ADRIAMYCIN [Concomitant]
     Indication: BREAST CANCER
  17. 5-FU [Concomitant]
     Indication: BREAST CANCER
  18. FASLODEX [Concomitant]
     Indication: BREAST CANCER
  19. TAMOXIFEN [Concomitant]
     Indication: BREAST CANCER
  20. OXYCODONE [Concomitant]
  21. PROCRIT                            /00909301/ [Concomitant]
  22. OXYCONTIN [Concomitant]
  23. AMBIEN [Concomitant]
  24. OXYIR [Concomitant]
  25. COUMADIN ^DUPONT^ [Concomitant]
  26. ZOFRAN [Concomitant]
  27. COMPAZINE [Concomitant]
  28. LEVAQUIN [Concomitant]
  29. MULTIVITAMINS [Concomitant]
  30. MARINOL [Concomitant]

REACTIONS (121)
  - Death [Fatal]
  - Osteonecrosis of jaw [Unknown]
  - General physical health deterioration [Unknown]
  - Pain [Unknown]
  - Anxiety [Unknown]
  - Decreased interest [Unknown]
  - Jaw fracture [Unknown]
  - Bone disorder [Unknown]
  - Paraesthesia [Unknown]
  - Abscess jaw [Unknown]
  - Impaired healing [Unknown]
  - Actinomycosis [Unknown]
  - Osteomyelitis [Unknown]
  - Wound dehiscence [Unknown]
  - Dental fistula [Unknown]
  - Staphylococcal infection [Unknown]
  - Metastases to bone [Unknown]
  - Bone pain [Unknown]
  - Back pain [Unknown]
  - Metastases to spine [Unknown]
  - Lumbar spinal stenosis [Unknown]
  - Nephrolithiasis [Unknown]
  - Thrombocytopenia [Unknown]
  - Neutropenia [Unknown]
  - Memory impairment [Unknown]
  - Gastritis [Unknown]
  - Peptic ulcer [Unknown]
  - Electrolyte imbalance [Unknown]
  - Musculoskeletal disorder [Unknown]
  - Ear infection [Recovering/Resolving]
  - Pneumonia [Unknown]
  - Obstruction [Unknown]
  - Night sweats [Unknown]
  - Hepatic lesion [Unknown]
  - Decreased appetite [Unknown]
  - Candida infection [Unknown]
  - Asthenia [Unknown]
  - Leukopenia [Unknown]
  - Radius fracture [Unknown]
  - Periarthritis [Unknown]
  - Bone neoplasm [Unknown]
  - Pathological fracture [Unknown]
  - Synovial cyst [Unknown]
  - Patella fracture [Unknown]
  - Osteopenia [Unknown]
  - Tendonitis [Unknown]
  - Rotator cuff syndrome [Unknown]
  - Carpal tunnel syndrome [Unknown]
  - Myocardial ischaemia [Unknown]
  - Hypoaesthesia [Unknown]
  - Cyst [Unknown]
  - Meniscus injury [Unknown]
  - Lumbar radiculopathy [Unknown]
  - Spinal osteoarthritis [Unknown]
  - Pelvic haematoma [Unknown]
  - Pubis fracture [Unknown]
  - Weight decreased [Unknown]
  - Mass [Unknown]
  - Neuralgia [Unknown]
  - Stress fracture [Unknown]
  - Musculoskeletal pain [Unknown]
  - Fractured sacrum [Unknown]
  - Radiculopathy [Unknown]
  - Deep vein thrombosis [Unknown]
  - Periostitis [Unknown]
  - Atrial fibrillation [Unknown]
  - Hypercholesterolaemia [Unknown]
  - Psoriasis [Unknown]
  - Cystitis haemorrhagic [Unknown]
  - Hot flush [Unknown]
  - Urethral caruncle [Unknown]
  - Cataract [Unknown]
  - Cystitis klebsiella [Unknown]
  - Nausea [Unknown]
  - Cerebral atrophy [Unknown]
  - Hydronephrosis [Unknown]
  - Neck pain [Unknown]
  - Cervical spinal stenosis [Unknown]
  - Neuritis [Unknown]
  - Post herpetic neuralgia [Unknown]
  - Herpes zoster [Unknown]
  - Pain in extremity [Unknown]
  - Swelling [Unknown]
  - Dizziness [Unknown]
  - Vertigo [Unknown]
  - Pancreatic atrophy [Unknown]
  - Otitis externa [Recovering/Resolving]
  - Chest pain [Unknown]
  - Pelvic pain [Unknown]
  - Insomnia [Unknown]
  - Aortic arteriosclerosis [Unknown]
  - Granuloma [Unknown]
  - Urinary tract infection [Unknown]
  - Abdominal pain lower [Unknown]
  - Osteosclerosis [Unknown]
  - Flank pain [Unknown]
  - Haematuria [Unknown]
  - White matter lesion [Unknown]
  - Bone lesion [Unknown]
  - Chronic obstructive pulmonary disease [Unknown]
  - Osteolysis [Unknown]
  - Ureteric obstruction [Unknown]
  - Vomiting [Unknown]
  - Dehydration [Unknown]
  - Pancreatitis [Unknown]
  - Contusion [Unknown]
  - Depression [Unknown]
  - Hepatic steatosis [Unknown]
  - Cervical radiculopathy [Unknown]
  - Intervertebral disc protrusion [Unknown]
  - Splenic calcification [Unknown]
  - Renal cyst [Unknown]
  - Soft tissue mass [Unknown]
  - Spinal cord compression [Unknown]
  - Exostosis [Unknown]
  - Hypoacusis [Unknown]
  - Facet joint syndrome [Unknown]
  - Bladder cancer [Unknown]
  - Spondylolisthesis [Unknown]
  - Bone marrow failure [Unknown]
  - Scoliosis [Unknown]
